FAERS Safety Report 18035266 (Version 2)
Quarter: 2020Q3

REPORT INFORMATION
  Report Type: Spontaneous
  Country: JP (occurrence: JP)
  Receive Date: 20200717
  Receipt Date: 20200724
  Transmission Date: 20201103
  Serious: Yes (Other)
  Sender: FDA-Public Use
  Company Number: JP-TEVA-2020-JP-1803346

PATIENT
  Age: 64 Year
  Sex: Female

DRUGS (8)
  1. TRERIEF [Concomitant]
     Active Substance: ZONISAMIDE
  2. COMTAN [Concomitant]
     Active Substance: ENTACAPONE
  3. AZILECT [Suspect]
     Active Substance: RASAGILINE MESYLATE
     Dosage: .5 MILLIGRAM DAILY;
     Route: 048
  4. NEUPRO [Concomitant]
     Active Substance: ROTIGOTINE
  5. AZILECT [Suspect]
     Active Substance: RASAGILINE MESYLATE
     Indication: PARKINSON^S DISEASE
     Dosage: 1 MILLIGRAM DAILY;
     Route: 048
  6. MENESIT [Concomitant]
     Active Substance: CARBIDOPA\LEVODOPA
  7. LINZESS [Concomitant]
     Active Substance: LINACLOTIDE
  8. HEPARINOID [Concomitant]
     Active Substance: CHONDROITIN SULFATE (BOVINE)

REACTIONS (1)
  - Hypertensive crisis [Recovered/Resolved]
